FAERS Safety Report 4317195-0 (Version None)
Quarter: 2004Q1

REPORT INFORMATION
  Report Type: 
  Country: None (occurrence: None)
  Receive Date: 20040317
  Receipt Date: 20040205
  Transmission Date: 20041129
  Serious: Yes (Other)
  Sender: FDA-Public Use
  Company Number: 2004SA000012

PATIENT
  Age: 21 Year
  Sex: Male
  Weight: 52.7 kg

DRUGS (3)
  1. THYMOGLOBULIN [Suspect]
     Indication: APLASTIC ANAEMIA
     Dosage: 100 MG; X1; INTRAVENOUS
     Route: 042
     Dates: start: 20040204, end: 20040205
  2. FILGRASTIM [Concomitant]
  3. PREDNISONE [Concomitant]

REACTIONS (4)
  - BLOOD PRESSURE SYSTOLIC DECREASED [None]
  - CHILLS [None]
  - INFUSION RELATED REACTION [None]
  - PYREXIA [None]
